FAERS Safety Report 5365119-X (Version None)
Quarter: 2007Q2

REPORT INFORMATION
  Report Type: 
  Country: None (occurrence: None)
  Receive Date: 20070530
  Receipt Date: 20070125
  Transmission Date: 20071010
  Serious: No
  Sender: FDA-Public Use
  Company Number: 2006PV015886

PATIENT
  Age: 61 Year
  Sex: Male
  Weight: 92.9874 kg

DRUGS (13)
  1. BYETTA [Suspect]
     Indication: DIABETES MELLITUS NON-INSULIN-DEPENDENT
     Dosage: 10 MCG;BID;SC
     Route: 058
     Dates: start: 20060712
  2. BYETTA [Suspect]
     Dosage: 10 MCG;BID;SC
     Route: 058
  3. BYETTA [Suspect]
     Dosage: 5 MCG;BID;SC, 10 MCG;BID;SC
     Route: 058
     Dates: start: 20050615, end: 20060711
  4. BYETTA [Suspect]
     Dosage: 5 MCG;BID;SC, 10 MCG;BID;SC
     Route: 058
     Dates: start: 20060101
  5. AMARYL [Concomitant]
  6. AVANDIA [Concomitant]
  7. LANTUS [Concomitant]
  8. HUMALOG [Concomitant]
  9. VIAGRA [Concomitant]
  10. TRIAMTERENE 75/50 [Concomitant]
  11. LOTENSIN [Concomitant]
  12. AMARYL [Concomitant]
  13. METFORMIN HCL [Concomitant]

REACTIONS (6)
  - BLOOD GLUCOSE INCREASED [None]
  - DIZZINESS [None]
  - HYPERHIDROSIS [None]
  - NAUSEA [None]
  - THERAPEUTIC RESPONSE UNEXPECTED [None]
  - WEIGHT DECREASED [None]
